FAERS Safety Report 6911463-1 (Version None)
Quarter: 2010Q3

REPORT INFORMATION
  Report Type: 
  Country: None (occurrence: None)
  Receive Date: 20100806
  Receipt Date: 20100729
  Transmission Date: 20110219
  Serious: Yes (Hospitalization)
  Sender: FDA-Public Use
  Company Number: US-B.I. PHARMACEUTICALS,INC./RIDGEFIELD-2010-BP-08627BP

PATIENT
  Age: 48 Year
  Sex: Female

DRUGS (2)
  1. DULCOLAX [Suspect]
     Indication: CONSTIPATION
     Dosage: 10 MG
     Route: 054
     Dates: start: 20100724, end: 20100724
  2. CHARCOAL CAPS [Suspect]

REACTIONS (4)
  - CONSTIPATION [None]
  - FEELING HOT [None]
  - GASTRIC DILATATION [None]
  - OEDEMA PERIPHERAL [None]
